FAERS Safety Report 7894292-4 (Version None)
Quarter: 2011Q4

REPORT INFORMATION
  Report Type: 
  Country: None (occurrence: None)
  Receive Date: 20111104
  Receipt Date: 20111021
  Transmission Date: 20120403
  Serious: Yes (Hospitalization)
  Sender: FDA-Public Use
  Company Number: GB-ARROW GEN-2011-08630

PATIENT
  Age: 43 Year
  Sex: Female
  Weight: 67 kg

DRUGS (4)
  1. CANDESARTAN CILEXETIL [Concomitant]
     Indication: PRODUCT USED FOR UNKNOWN INDICATION
     Dosage: UNK
     Route: 065
     Dates: start: 20110404
  2. CITALOPRAM HYDROBROMIDE [Suspect]
     Indication: DEPRESSION
     Dosage: 10 MG, UNKNOWN
     Route: 065
     Dates: start: 20110407
  3. CANDESARTAN CILEXETIL [Concomitant]
     Dosage: UNK
     Route: 065
     Dates: start: 20110204, end: 20110304
  4. CITALOPRAM HYDROBROMIDE [Suspect]
     Dosage: 20 MG, UNKNOWN
     Route: 065

REACTIONS (3)
  - AGITATION [None]
  - MALAISE [None]
  - ACUTE PSYCHOSIS [None]
